FAERS Safety Report 4956420-X (Version None)
Quarter: 2006Q1

REPORT INFORMATION
  Report Type: 
  Country: None (occurrence: None)
  Receive Date: 20060329
  Receipt Date: 20060323
  Transmission Date: 20060701
  Serious: Yes (Other)
  Sender: FDA-Public Use
  Company Number: 2006AP01451

PATIENT
  Age: 25 Year
  Sex: Female

DRUGS (4)
  1. OMEPRAL [Suspect]
     Indication: GASTRIC ULCER
     Route: 048
     Dates: start: 20060202, end: 20060321
  2. SELBEX [Suspect]
     Route: 048
     Dates: start: 20060118, end: 20060130
  3. RIZABEN [Concomitant]
     Route: 048
     Dates: start: 20050204, end: 20051226
  4. LAXOSELIN [Concomitant]
     Route: 048

REACTIONS (2)
  - BLOOD PROLACTIN INCREASED [None]
  - MENSTRUATION IRREGULAR [None]
